FAERS Safety Report 12641692 (Version 1)
Quarter: 2016Q3

REPORT INFORMATION
  Report Type: Spontaneous
  Country: US (occurrence: US)
  Receive Date: 20160810
  Receipt Date: 20160810
  Transmission Date: 20161109
  Serious: No
  Sender: FDA-Public Use
  Company Number: US-BAYER-2016-153909

PATIENT
  Age: 77 Year
  Sex: Female
  Weight: 65.77 kg

DRUGS (7)
  1. ELAVIL [Concomitant]
     Active Substance: AMITRIPTYLINE HYDROCHLORIDE
     Indication: DEPRESSION
     Dosage: UNK
  2. VALIUM [Concomitant]
     Active Substance: DIAZEPAM
     Indication: ANXIETY
     Dosage: UNK
  3. DEXTROMETHORPH W/DOXYLAM/PARACET/PSEUDOEPHED [Concomitant]
     Indication: EAR DISORDER
     Dosage: UNK
  4. MIRALAX [Suspect]
     Active Substance: POLYETHYLENE GLYCOL 3350
     Indication: CONSTIPATION
     Dosage: 1 DOSE, QD
     Route: 048
     Dates: start: 20160725, end: 20160807
  5. LIPITOR [Concomitant]
     Active Substance: ATORVASTATIN CALCIUM
     Indication: BLOOD CHOLESTEROL INCREASED
     Dosage: UNK
  6. GABAPENTIN. [Concomitant]
     Active Substance: GABAPENTIN
     Dosage: UNK
  7. ESTROGEN [Concomitant]
     Active Substance: ESTRONE\SUS SCROFA OVARY
     Indication: FEELING OF RELAXATION

REACTIONS (1)
  - Product use issue [None]

NARRATIVE: CASE EVENT DATE: 20160725
